FAERS Safety Report 7423933-0 (Version None)
Quarter: 2011Q2

REPORT INFORMATION
  Report Type: 
  Country: None (occurrence: None)
  Receive Date: 20110419
  Receipt Date: 20110412
  Transmission Date: 20111010
  Serious: Yes (Death)
  Sender: FDA-Public Use
  Company Number: A0903055A

PATIENT
  Age: 50 Year
  Sex: Male

DRUGS (17)
  1. AVANDIA [Suspect]
     Indication: DIABETES MELLITUS
     Dosage: 4MG PER DAY
     Route: 048
     Dates: start: 20040513, end: 20050317
  2. MORPHINE [Concomitant]
  3. NITROGLYCERIN [Concomitant]
  4. AMITRIPTYLINE [Concomitant]
  5. TRICOR [Concomitant]
  6. AVANDAMET [Suspect]
     Indication: DIABETES MELLITUS
     Route: 048
     Dates: start: 20030101, end: 20040405
  7. LOVASTATIN [Concomitant]
  8. METFORMIN HCL [Concomitant]
  9. MEVACOR [Concomitant]
  10. LORTAB [Concomitant]
  11. ZESTRIL [Concomitant]
  12. NORVASC [Concomitant]
  13. ASPIRIN [Concomitant]
  14. ATENOLOL [Concomitant]
  15. LISINOPRIL [Concomitant]
  16. ELAVIL [Concomitant]
  17. GLUCOPHAGE [Concomitant]

REACTIONS (3)
  - CARDIAC FAILURE CONGESTIVE [None]
  - PERICARDIAL EFFUSION [None]
  - ENDOCARDITIS BACTERIAL [None]
